FAERS Safety Report 6939482-X (Version None)
Quarter: 2010Q3

REPORT INFORMATION
  Report Type: 
  Country: None (occurrence: None)
  Receive Date: 20100819
  Receipt Date: 20100812
  Transmission Date: 20110219
  Serious: Yes (Death, Life-Threatening)
  Sender: FDA-Public Use
  Company Number: 2010EU003845

PATIENT
  Age: 69 Year
  Sex: Male

DRUGS (9)
  1. PROGRAF [Suspect]
     Indication: RENAL TRANSPLANT
     Dosage: 4.5 MG, BID, ORAL
     Route: 048
     Dates: start: 20090929, end: 20100704
  2. PREDNISONE [Suspect]
     Indication: RENAL TRANSPLANT
     Dosage: 20 MG, UID/QD,ORAL
     Route: 048
     Dates: start: 20090929, end: 20100704
  3. RITUXIMAB (RITUXIMAB) [Concomitant]
  4. ESOMEPRAZOLE MAGNESIUM [Concomitant]
  5. TAMSULOSIN HCL [Concomitant]
  6. VALGANCICLOVIR HCL [Concomitant]
  7. TORSEMIDE [Concomitant]
  8. SPIRONOLACTONE [Concomitant]
  9. CLOMETHIAZOLE (CLOMETHIAZOLE) [Concomitant]

REACTIONS (2)
  - BRONCHOPULMONARY ASPERGILLOSIS [None]
  - SEPSIS [None]
